FAERS Safety Report 5174345-4 (Version None)
Quarter: 2006Q4

REPORT INFORMATION
  Report Type: 
  Country: None (occurrence: None)
  Receive Date: 20061214
  Receipt Date: 20061016
  Transmission Date: 20070319
  Serious: Yes (Hospitalization, Other)
  Sender: FDA-Public Use
  Company Number: US-BRISTOL-MYERS SQUIBB COMPANY-13542691

PATIENT
  Age: 30 Year
  Sex: Male
  Weight: 90 kg

DRUGS (9)
  1. TRAZODONE HCL [Suspect]
     Indication: SLEEP DISORDER
     Dates: start: 20060808
  2. ABILIFY [Suspect]
     Route: 048
     Dates: start: 20060914
  3. CONSTA [Suspect]
     Indication: SCHIZOPHRENIA
     Dates: start: 20060727, end: 20060822
  4. QUETIAPINE FUMARATE [Concomitant]
     Dates: start: 20060825
  5. RISPERDAL [Concomitant]
     Indication: SCHIZOPHRENIA
     Dates: start: 20060727
  6. HUMULIN 70/30 [Concomitant]
     Dates: start: 20031215
  7. LISINOPRIL [Concomitant]
     Dates: start: 19920101
  8. HYDROCHLOROTHIAZIDE [Concomitant]
     Dates: start: 19920101
  9. ALBUTEROL [Concomitant]
     Route: 055
     Dates: start: 20060630

REACTIONS (3)
  - HALLUCINATION, AUDITORY [None]
  - OVERDOSE [None]
  - SCHIZOPHRENIA [None]
